FAERS Safety Report 5028016-5 (Version None)
Quarter: 2006Q2

REPORT INFORMATION
  Report Type: 
  Country: None (occurrence: None)
  Receive Date: 20060612
  Receipt Date: 20060526
  Transmission Date: 20061013
  Serious: Yes (Hospitalization)
  Sender: FDA-Public Use
  Company Number: 223152

PATIENT
  Age: 47 Year
  Sex: Male

DRUGS (1)
  1. RAPTIVA [Suspect]
     Dosage: 0.8 ML, 1/WEEK, SUBCUTANEOUS
     Route: 058
     Dates: start: 20030514, end: 20060313

REACTIONS (9)
  - BONE MARROW FAILURE [None]
  - BONE MARROW TOXICITY [None]
  - EPISTAXIS [None]
  - EPSTEIN-BARR VIRUS INFECTION [None]
  - GAMMA-GLUTAMYLTRANSFERASE INCREASED [None]
  - INFLAMMATION [None]
  - PANCYTOPENIA [None]
  - PYREXIA [None]
  - TESTIS CANCER [None]
